FAERS Safety Report 10160306 (Version 3)
Quarter: 2014Q4

REPORT INFORMATION
  Report Type: Report from Study
  Country: BR (occurrence: BR)
  Receive Date: 20140508
  Receipt Date: 20141021
  Transmission Date: 20150528
  Serious: Yes (Other)
  Sender: FDA-Public Use
  Company Number: PHHY2014BR055572

PATIENT
  Age: 79 Year
  Sex: Female
  Weight: 91 kg

DRUGS (7)
  1. SANDOSTATIN LAR DEPOT [Suspect]
     Active Substance: OCTREOTIDE ACETATE
     Indication: PITUITARY TUMOUR
     Dosage: 2 DF (20 MG), EVERY 28 DAYS
     Route: 030
     Dates: start: 2000, end: 20141003
  2. SANDOSTATIN LAR DEPOT [Suspect]
     Active Substance: OCTREOTIDE ACETATE
     Indication: MENINGIOMA
  3. ENALAPRIL [Concomitant]
     Active Substance: ENALAPRIL
     Indication: HYPERTENSION
     Dosage: 1 DF, DAILY
     Route: 048
     Dates: start: 19890630
  4. ENALAPRIL [Concomitant]
     Active Substance: ENALAPRIL
     Dosage: 1 DF, DAILY (MORNING)
     Route: 048
     Dates: start: 19890630
  5. CABERGOLINE. [Suspect]
     Active Substance: CABERGOLINE
     Indication: PITUITARY TUMOUR
     Dosage: 6 DF, TIW (TUE, THURS, FRI)
     Route: 048
  6. CABERGOLINE. [Suspect]
     Active Substance: CABERGOLINE
     Indication: MENINGIOMA
     Dosage: 2 DF, TIW (TUE, THURS, SAT)
     Route: 065
  7. SANDOSTATIN LAR DEPOT [Suspect]
     Active Substance: OCTREOTIDE ACETATE
     Indication: OFF LABEL USE

REACTIONS (4)
  - Neoplasm progression [Not Recovered/Not Resolved]
  - Meningioma [Not Recovered/Not Resolved]
  - Body height decreased [Unknown]
  - Glucose tolerance impaired [Not Recovered/Not Resolved]

NARRATIVE: CASE EVENT DATE: 201405
